FAERS Safety Report 6842863-6 (Version None)
Quarter: 2010Q3

REPORT INFORMATION
  Report Type: 
  Country: None (occurrence: None)
  Receive Date: 20100714
  Receipt Date: 20070906
  Transmission Date: 20110219
  Serious: No
  Sender: FDA-Public Use
  Company Number: US-PFIZER INC-2007066507

PATIENT
  Sex: Male
  Weight: 68.2 kg

DRUGS (3)
  1. CHANTIX [Suspect]
     Indication: SMOKING CESSATION THERAPY
     Dates: start: 20070701
  2. LIPITOR [Concomitant]
  3. NICOTINE [Concomitant]
     Indication: SMOKING CESSATION THERAPY

REACTIONS (9)
  - ABDOMINAL DISCOMFORT [None]
  - ABDOMINAL DISTENSION [None]
  - ABNORMAL DREAMS [None]
  - EMOTIONAL DISORDER [None]
  - INSOMNIA [None]
  - NAUSEA [None]
  - PERSONALITY DISORDER [None]
  - SLEEP DISORDER [None]
  - STRESS [None]
